FAERS Safety Report 8107802 (Version 3)
Quarter: 2013Q1

REPORT INFORMATION
  Report Type: Spontaneous
  Country: US (occurrence: US)
  Receive Date: 20110826
  Receipt Date: 20130114
  Transmission Date: 20140127
  Serious: No
  Sender: FDA-Public Use
  Company Number: US-BAYER-2011-021566

PATIENT
  Sex: Female

DRUGS (2)
  1. MIRENA [Suspect]
     Dosage: 20 MCG/24HR, CONT
     Route: 015
     Dates: start: 20101021, end: 20101207
  2. PREPARATION H [GLYCEROL,PETROLATUM,PHENYLEPHRINE HYDROCHLORIDE,SHA [Concomitant]

REACTIONS (4)
  - Muscle spasms [None]
  - Discomfort [None]
  - Dyspareunia [Recovered/Resolved]
  - Orgasm abnormal [Recovered/Resolved]
